FAERS Safety Report 24154387 (Version 1)
Quarter: 2024Q3

REPORT INFORMATION
  Report Type: Spontaneous
  Country: US (occurrence: US)
  Receive Date: 20240731
  Receipt Date: 20240731
  Transmission Date: 20241017
  Serious: Yes (Other)
  Sender: ABBVIE
  Company Number: US-ABBVIE-5851677

PATIENT
  Age: 60 Year
  Sex: Female
  Weight: 56.7 kg

DRUGS (4)
  1. LEXAPRO [Suspect]
     Active Substance: ESCITALOPRAM OXALATE
     Indication: Adjustment disorder with depressed mood
     Dosage: FOR THOSE TWO WEEKS?LAST ADMIN DATE JUL 2024
     Route: 048
     Dates: start: 20240702
  2. DESVENLAFAXINE [Suspect]
     Active Substance: DESVENLAFAXINE
     Indication: Adjustment disorder with depressed mood
     Dosage: EXTENDED RELEASE
     Route: 048
     Dates: start: 20240618
  3. BUPROPION [Suspect]
     Active Substance: BUPROPION
     Indication: Antidepressant therapy
     Route: 048
  4. PRISTIQ EXTENDED-RELEASE [Suspect]
     Active Substance: DESVENLAFAXINE SUCCINATE
     Indication: Product used for unknown indication
     Dosage: EXTENDED RELEASE
     Route: 065

REACTIONS (7)
  - Ileostomy [Unknown]
  - Dyspepsia [Not Recovered/Not Resolved]
  - Product residue present [Unknown]
  - Colectomy [Unknown]
  - Proctectomy [Unknown]
  - Crohn^s disease [Not Recovered/Not Resolved]
  - Therapeutic product effect incomplete [Unknown]

NARRATIVE: CASE EVENT DATE: 20240618
